FAERS Safety Report 6444854-6 (Version None)
Quarter: 2009Q4

REPORT INFORMATION
  Report Type: 
  Country: None (occurrence: None)
  Receive Date: 20091118
  Receipt Date: 20091109
  Transmission Date: 20100525
  Serious: Yes (Death)
  Sender: FDA-Public Use
  Company Number: US-NAPPMUNDI-GBR-2009-0005819

PATIENT
  Sex: Male

DRUGS (1)
  1. DILAUDID-HP [Suspect]
     Indication: PAIN
     Dosage: UNK
     Route: 042

REACTIONS (1)
  - DEATH [None]
